FAERS Safety Report 16493916 (Version 3)
Quarter: 2020Q2

REPORT INFORMATION
  Report Type: Spontaneous
  Country: US (occurrence: US)
  Receive Date: 20190628
  Receipt Date: 20200406
  Transmission Date: 20200713
  Serious: Yes (Other)
  Sender: FDA-Public Use
  Company Number: US-AMGEN INC.-USASP2019102466

PATIENT
  Sex: Female

DRUGS (1)
  1. AIMOVIG [Suspect]
     Active Substance: ERENUMAB-AOOE
     Indication: MIGRAINE
     Dosage: UNK
     Route: 065
     Dates: start: 2018

REACTIONS (5)
  - Weight increased [Unknown]
  - Back pain [Not Recovered/Not Resolved]
  - Fall [Unknown]
  - Multiple fractures [Not Recovered/Not Resolved]
  - Hypertension [Not Recovered/Not Resolved]
